FAERS Safety Report 4410685-1 (Version None)
Quarter: 2004Q3

REPORT INFORMATION
  Report Type: 
  Country: None (occurrence: None)
  Receive Date: 20040729
  Receipt Date: 20040719
  Transmission Date: 20050211
  Serious: Yes (Death)
  Sender: FDA-Public Use
  Company Number: JP-BRISTOL-MYERS SQUIBB COMPANY-12644696

PATIENT
  Age: 72 Year
  Sex: Female

DRUGS (3)
  1. METHOTREXATE [Suspect]
     Indication: RHEUMATOID ARTHRITIS
     Dates: start: 20000701
  2. PREDNISOLONE [Concomitant]
  3. BUCILLAMINE [Concomitant]

REACTIONS (2)
  - HEPATITIS FULMINANT [None]
  - PNEUMONIA FUNGAL [None]
